FAERS Safety Report 6681475-4 (Version None)
Quarter: 2010Q2

REPORT INFORMATION
  Report Type: 
  Country: None (occurrence: None)
  Receive Date: 20100414
  Receipt Date: 20100408
  Transmission Date: 20101027
  Serious: Yes (Death, Hospitalization)
  Sender: FDA-Public Use
  Company Number: JP-JNJFOC-20100402642

PATIENT
  Sex: Female
  Weight: 40 kg

DRUGS (22)
  1. DOXORUBICIN HCL [Suspect]
     Indication: OVARIAN CANCER RECURRENT
     Dosage: CYCLE 1
     Route: 042
  2. OXYCONTIN [Suspect]
     Indication: DRUG USE FOR UNKNOWN INDICATION
     Route: 048
  3. FAMOTIDINE [Concomitant]
     Route: 048
  4. DEPAS [Concomitant]
     Route: 048
  5. MYSLEE [Concomitant]
     Route: 048
  6. SENNOSIDE [Concomitant]
     Route: 048
  7. LORFENAMIN [Concomitant]
     Route: 065
  8. MS ONSHIPPU [Concomitant]
     Route: 062
  9. PROCHLORPERAZINE [Concomitant]
     Route: 048
  10. MUCOSTA [Concomitant]
     Route: 048
  11. VOLTAREN [Concomitant]
     Route: 054
  12. ZYPREXA [Concomitant]
     Route: 048
  13. HALCION [Concomitant]
     Route: 048
  14. BROTIZOLAN [Concomitant]
     Route: 048
  15. DEXALTIN [Concomitant]
     Route: 061
  16. ANPEC [Concomitant]
     Route: 054
  17. NEUTROGIN [Concomitant]
     Route: 065
  18. CEFAZOLIN SODIUM [Concomitant]
     Route: 042
  19. CALCICOL [Concomitant]
     Route: 050
  20. RINDERON [Concomitant]
     Route: 042
  21. UNASYN [Concomitant]
     Route: 042
  22. PACETCOOL [Concomitant]
     Route: 042

REACTIONS (8)
  - C-REACTIVE PROTEIN INCREASED [None]
  - DISSEMINATED INTRAVASCULAR COAGULATION [None]
  - DYSPHAGIA [None]
  - DYSPHONIA [None]
  - DYSPNOEA [None]
  - OVARIAN CANCER [None]
  - PYREXIA [None]
  - WHITE BLOOD CELL COUNT DECREASED [None]
